FAERS Safety Report 6748086-3 (Version None)
Quarter: 2010Q2

REPORT INFORMATION
  Report Type: 
  Country: None (occurrence: None)
  Receive Date: 20100531
  Receipt Date: 20100517
  Transmission Date: 20101027
  Serious: Yes (Other)
  Sender: FDA-Public Use
  Company Number: US-ASTRAZENECA-2009UW00206

PATIENT
  Age: 58 Year
  Sex: Male
  Weight: 140.6 kg

DRUGS (6)
  1. SEROQUEL [Suspect]
     Indication: DEPRESSION
     Route: 048
     Dates: start: 20020916
  2. SEROQUEL [Suspect]
     Route: 048
     Dates: start: 20040101, end: 20050101
  3. GEODON [Concomitant]
     Dates: start: 20020901
  4. CLONAZEPAM [Concomitant]
     Indication: ANXIETY
     Dosage: 1.5-5MG
     Dates: start: 20020101
  5. METHADONE [Concomitant]
     Indication: PAIN
     Dates: start: 20020901
  6. ZOLOFT [Concomitant]
     Dates: start: 20020916

REACTIONS (7)
  - DEPRESSION [None]
  - DIABETES MELLITUS [None]
  - DIABETIC KETOACIDOSIS [None]
  - HYPERTENSION [None]
  - JOINT INJURY [None]
  - LEG AMPUTATION [None]
  - WEIGHT INCREASED [None]
